FAERS Safety Report 15395007 (Version 14)
Quarter: 2025Q4

REPORT INFORMATION
  Report Type: Report from Study
  Country: EU (occurrence: EU)
  Receive Date: 20180918
  Receipt Date: 20251212
  Transmission Date: 20260117
  Serious: Yes (Hospitalization)
  Sender: ROCHE
  Company Number: EU-ROCHE-2184134

PATIENT
  Age: 40 Year
  Sex: Female
  Weight: 65 kg

DRUGS (19)
  1. OCRELIZUMAB [Suspect]
     Active Substance: OCRELIZUMAB
     Indication: Multiple sclerosis
     Route: 042
     Dates: start: 20180307, end: 20180322
  2. OCRELIZUMAB [Suspect]
     Active Substance: OCRELIZUMAB
     Route: 042
     Dates: start: 20180307
  3. LEVOTHYROXINE SODIUM [Concomitant]
     Active Substance: LEVOTHYROXINE SODIUM
     Indication: Hypothyroidism
     Route: 048
     Dates: start: 201902, end: 201902
  4. BACLOFEN [Concomitant]
     Active Substance: BACLOFEN
     Indication: Muscle spasticity
     Route: 048
     Dates: start: 202003
  5. PREDNISOLONE [Concomitant]
     Active Substance: PREDNISOLONE
     Indication: Premedication
     Dosage: PRE-MEDICATION BEFORE OCRELIZUMAB ONLY ON INFUSION DAY
     Route: 042
     Dates: start: 20180307
  6. PREDNISOLONE [Concomitant]
     Active Substance: PREDNISOLONE
     Dosage: PRE-MEDICATION BEFORE OCRELIZUMAB ONLY ON INFUSION DAY
     Route: 042
  7. PREGABALIN [Concomitant]
     Active Substance: PREGABALIN
     Indication: Neuralgia
     Dosage: INITIAL DOSE PREGABALIN 75 MG TWICE DAILY (1-0-1) FROM MAR/2020 UNTIL OCT/2020
     Route: 048
     Dates: start: 202003
  8. VITAMIN B12 [Concomitant]
     Active Substance: CYANOCOBALAMIN
     Indication: Vitamin B complex deficiency
     Route: 058
     Dates: start: 20000101, end: 20200601
  9. BOTOX [Concomitant]
     Active Substance: ONABOTULINUMTOXINA
     Indication: Hyperhidrosis
     Route: 023
     Dates: start: 20100427
  10. IBUPROFEN [Concomitant]
     Active Substance: IBUPROFEN
     Indication: Premedication
     Dosage: ANTIPYRETIC,PREMEDICATION BEFORE OCRELIZUMAB ONLY ON INFUSION DAY
     Route: 051
     Dates: start: 20180307
  11. IBUPROFEN [Concomitant]
     Active Substance: IBUPROFEN
     Dosage: ANTIPYRETIC,PREMEDICATION BEFORE OCRELIZUMAB ONLY ON INFUSION DAY
     Route: 051
  12. FOLIC ACID [Concomitant]
     Active Substance: FOLIC ACID
     Indication: Folate deficiency
     Route: 048
     Dates: start: 20000101, end: 20191201
  13. DIMETHINDENE [Concomitant]
     Active Substance: DIMETHINDENE
     Indication: Premedication
     Dosage: ANTIHISTAMINE PREMEDICATION BEFORE OCRELIZUMAB ONLY ON INFUSION DAY
     Route: 042
     Dates: start: 20180307
  14. DIMETHINDENE [Concomitant]
     Active Substance: DIMETHINDENE
     Dosage: ANTIHISTAMINE PREMEDICATION BEFORE OCRELIZUMAB ONLY ON INFUSION DAY
     Route: 042
  15. CITALOPRAM [Concomitant]
     Active Substance: CITALOPRAM
     Indication: Depression
     Route: 048
     Dates: start: 20160101
  16. BISOPROLOL [Concomitant]
     Active Substance: BISOPROLOL
     Indication: Hypertension
     Route: 048
  17. AMLODIPINE BESYLATE [Concomitant]
     Active Substance: AMLODIPINE BESYLATE
     Indication: Hypertension
     Route: 048
  18. Tapestadol [Concomitant]
     Indication: Pain
     Route: 048
  19. LEVETIRACETAM [Concomitant]
     Active Substance: LEVETIRACETAM
     Indication: Epilepsy
     Route: 048

REACTIONS (3)
  - Cholelithiasis [Recovering/Resolving]
  - Gastritis [Unknown]
  - Liver function test increased [Unknown]

NARRATIVE: CASE EVENT DATE: 20180312
